FAERS Safety Report 5794522-9 (Version None)
Quarter: 2008Q2

REPORT INFORMATION
  Report Type: 
  Country: None (occurrence: None)
  Receive Date: 20080626
  Receipt Date: 20080613
  Transmission Date: 20081010
  Serious: Yes (Other)
  Sender: FDA-Public Use
  Company Number: FR-1166393

PATIENT
  Age: 44 Year

DRUGS (1)
  1. TRAVATAN [Suspect]
     Dosage: OPHTHALMIC
     Route: 047
     Dates: start: 20080414, end: 20080415

REACTIONS (1)
  - TRANSIENT ISCHAEMIC ATTACK [None]
